FAERS Safety Report 23453027 (Version 1)
Quarter: 2024Q1

REPORT INFORMATION
  Report Type: Report from Study
  Country: US (occurrence: US)
  Receive Date: 20240129
  Receipt Date: 20240129
  Transmission Date: 20240410
  Serious: Yes (Death, Other)
  Sender: FDA-Public Use
  Company Number: US-PFIZER INC-202201250300

PATIENT
  Age: 86 Year
  Sex: Male

DRUGS (23)
  1. VYNDAMAX [Suspect]
     Active Substance: TAFAMIDIS
     Dosage: 61 MG, DAILY
     Route: 048
     Dates: start: 202106
  2. TOUJEO MAX [Concomitant]
     Active Substance: INSULIN GLARGINE
     Indication: Fluid retention
     Dosage: (300UNIT/ML), AS NEEDED
  3. ASPIRIN [Concomitant]
     Active Substance: ASPIRIN
     Dosage: UNK
  4. FIBER [Concomitant]
     Dosage: UNK
  5. TEA LEAF [Concomitant]
     Active Substance: TEA LEAF
     Dosage: UNK
  6. IRON [Concomitant]
     Active Substance: IRON
     Dosage: UNK
  7. TYLENOL [Concomitant]
     Active Substance: ACETAMINOPHEN
     Dosage: UNK
  8. VICTOZA [Concomitant]
     Active Substance: LIRAGLUTIDE
     Dosage: UNK
  9. HYDROXOCOBALAMIN [Concomitant]
     Active Substance: HYDROXOCOBALAMIN
     Dosage: UNK
  10. VITAMIN D3 [Concomitant]
     Active Substance: CHOLECALCIFEROL
     Dosage: UNK
  11. KLOR-CON [Concomitant]
     Active Substance: POTASSIUM CHLORIDE
     Dosage: UNK
  12. ELIQUIS [Concomitant]
     Active Substance: APIXABAN
     Dosage: UNK
  13. ATORVASTATIN CALCIUM [Concomitant]
     Active Substance: ATORVASTATIN CALCIUM
     Dosage: UNK
  14. LIDOCAINE [Concomitant]
     Active Substance: LIDOCAINE
     Dosage: UNK
  15. OMEPRAZOLE [Concomitant]
     Active Substance: OMEPRAZOLE
     Dosage: UNK
  16. METOLAZONE [Concomitant]
     Active Substance: METOLAZONE
     Dosage: UNK
  17. ALLOPURINOL [Concomitant]
     Active Substance: ALLOPURINOL
     Dosage: UNK
  18. AMOXICILLIN [Concomitant]
     Active Substance: AMOXICILLIN
     Dosage: UNK
  19. ARTIFICIAL TEARS [CARMELLOSE SODIUM] [Concomitant]
     Dosage: UNK
  20. GABAPENTIN [Concomitant]
     Active Substance: GABAPENTIN
     Dosage: UNK
  21. TORSEMIDE [Concomitant]
     Active Substance: TORSEMIDE
     Dosage: UNK
  22. CALCIUM [Concomitant]
     Active Substance: CALCIUM
     Dosage: UNK
  23. FLUAD QUAD [Concomitant]
     Dosage: UNK

REACTIONS (10)
  - Death [Fatal]
  - Pain [Not Recovered/Not Resolved]
  - Arthritis [Not Recovered/Not Resolved]
  - Rotator cuff syndrome [Unknown]
  - Dyspnoea exertional [Not Recovered/Not Resolved]
  - Dyspnoea [Not Recovered/Not Resolved]
  - Back pain [Not Recovered/Not Resolved]
  - Neck pain [Not Recovered/Not Resolved]
  - Intervertebral disc disorder [Not Recovered/Not Resolved]
  - Loss of personal independence in daily activities [Not Recovered/Not Resolved]

NARRATIVE: CASE EVENT DATE: 20240123
